FAERS Safety Report 8092068-9 (Version None)
Quarter: 2012Q1

REPORT INFORMATION
  Report Type: 
  Country: None (occurrence: None)
  Receive Date: 20120129
  Receipt Date: 20111109
  Transmission Date: 20120608
  Serious: No
  Sender: FDA-Public Use
  Company Number: US-ABBOTT-11P-163-0872888-00

PATIENT
  Sex: Female
  Weight: 74.91 kg

DRUGS (2)
  1. HUMIRA [Suspect]
     Indication: PSORIASIS
     Route: 058
     Dates: start: 20100101
  2. HUMIRA [Suspect]
     Indication: PSORIATIC ARTHROPATHY

REACTIONS (6)
  - HEADACHE [None]
  - VOMITING [None]
  - ABDOMINAL PAIN UPPER [None]
  - GASTROENTERITIS VIRAL [None]
  - FLATULENCE [None]
  - ARTHRALGIA [None]
